FAERS Safety Report 24071012 (Version 1)
Quarter: 2024Q3

REPORT INFORMATION
  Report Type: Report from Study
  Country: US (occurrence: US)
  Receive Date: 20240710
  Receipt Date: 20240710
  Transmission Date: 20241016
  Serious: No
  Sender: ROCHE
  Company Number: US-ROCHE-3304698

PATIENT
  Age: 72 Year
  Sex: Female

DRUGS (11)
  1. ALECENSA [Suspect]
     Active Substance: ALECTINIB HYDROCHLORIDE
     Indication: Brain neoplasm
     Dosage: 4 CAPSULES WITH FOOF.
     Route: 048
  2. ACETAMINOPHEN [Concomitant]
     Active Substance: ACETAMINOPHEN
  3. BISACODYL [Concomitant]
     Active Substance: BISACODYL
  4. DEXAMETHASONE [Concomitant]
     Active Substance: DEXAMETHASONE
  5. DEXTROSE [Concomitant]
     Active Substance: DEXTROSE\DEXTROSE MONOHYDRATE
  6. COLACE [Concomitant]
     Active Substance: DOCUSATE SODIUM
  7. GLUCAGON [Concomitant]
     Active Substance: GLUCAGON\GLUCAGON HYDROCHLORIDE\WATER
  8. LEVETIRACETAM [Concomitant]
     Active Substance: LEVETIRACETAM
  9. PANTOPRAZOLE [Concomitant]
     Active Substance: PANTOPRAZOLE
  10. MIRALAX [Concomitant]
     Active Substance: POLYETHYLENE GLYCOL 3350
  11. SENNA S [Concomitant]
     Active Substance: DOCUSATE SODIUM\SENNA LEAF

REACTIONS (2)
  - Off label use [Unknown]
  - No adverse event [Unknown]
